FAERS Safety Report 16453720 (Version 1)
Quarter: 2019Q2

REPORT INFORMATION
  Report Type: Spontaneous
  Country: LT (occurrence: LT)
  Receive Date: 20190619
  Receipt Date: 20190619
  Transmission Date: 20190711
  Serious: Yes (Other)
  Sender: FDA-Public Use
  Company Number: LT-FRESENIUS KABI-FK201906725

PATIENT
  Age: 29 Year
  Sex: Male

DRUGS (1)
  1. KETOROLAC TROMETHAMINE INJECTION (MANUFACTURER UNKNOWN) [Suspect]
     Active Substance: KETOROLAC TROMETHAMINE
     Indication: PRODUCT USED FOR UNKNOWN INDICATION
     Dosage: DURING ANESTHESIA
     Route: 065

REACTIONS (1)
  - Acute kidney injury [Unknown]
